FAERS Safety Report 4651572-3 (Version None)
Quarter: 2005Q2

REPORT INFORMATION
  Report Type: 
  Country: None (occurrence: None)
  Receive Date: 20050502
  Receipt Date: 20050418
  Transmission Date: 20051028
  Serious: Yes (Other)
  Sender: FDA-Public Use
  Company Number: 2005062650

PATIENT
  Age: 59 Year
  Sex: Female
  Weight: 81.6475 kg

DRUGS (5)
  1. AROMASIN [Suspect]
     Indication: BREAST CANCER
     Dosage: 25 MG (25 MG 1 IN 1 D), ORAL
     Route: 048
     Dates: start: 20050301
  2. ATORVASTATIN CALCIUM [Concomitant]
  3. INSULIN [Concomitant]
  4. BIMATOPROST (BIMATOPROST) [Concomitant]
  5. ESCITALOPRAM (ESCITALPRAM) [Concomitant]

REACTIONS (1)
  - BLOOD GLUCOSE INCREASED [None]
